FAERS Safety Report 19798998 (Version 1)
Quarter: 2021Q3

REPORT INFORMATION
  Report Type: Spontaneous
  Country: US (occurrence: US)
  Receive Date: 20210907
  Receipt Date: 20210907
  Transmission Date: 20211014
  Serious: No
  Sender: FDA-Public Use
  Company Number: None

PATIENT
  Age: 55 Year
  Sex: Male
  Weight: 121.5 kg

DRUGS (3)
  1. KETOROLAC TROMETHAMINE NJECTION [Suspect]
     Active Substance: KETOROLAC TROMETHAMINE
     Indication: MUSCULOSKELETAL PAIN
     Dosage: ?          QUANTITY:1 INJECTION(S);?
     Route: 030
  2. TIZANIDINE TABLETS 4MG [Suspect]
     Active Substance: TIZANIDINE HYDROCHLORIDE
     Indication: MUSCULOSKELETAL PAIN
     Dosage: ?          QUANTITY:1 TABLET(S);?
     Route: 048
  3. ETODOLAC 400 MG TABS [Suspect]
     Active Substance: ETODOLAC

REACTIONS (3)
  - Headache [None]
  - Feeling of relaxation [None]
  - Somnolence [None]

NARRATIVE: CASE EVENT DATE: 20210906
